FAERS Safety Report 6587283-7 (Version None)
Quarter: 2010Q1

REPORT INFORMATION
  Report Type: 
  Country: None (occurrence: None)
  Receive Date: 20100217
  Receipt Date: 20090512
  Transmission Date: 20100710
  Serious: No
  Sender: FDA-Public Use
  Company Number: US-ALLERGAN-0906606US

PATIENT
  Age: 52 Year
  Sex: Female

DRUGS (5)
  1. BOTOX COSMETIC [Suspect]
     Indication: SKIN WRINKLING
     Dosage: UNK, SINGLE
     Route: 030
     Dates: start: 20090505, end: 20090505
  2. SEROQUEL [Concomitant]
     Dosage: 100 MG, QD
  3. NEURONTIN [Concomitant]
     Dosage: 600 MG, QD
  4. ADDERALL 30 [Concomitant]
     Dosage: 10 MG, QD
  5. KLONOPIN [Concomitant]
     Dosage: 1 MG, TID

REACTIONS (3)
  - ERYTHEMA [None]
  - HOT FLUSH [None]
  - SWELLING FACE [None]
